FAERS Safety Report 21006587 (Version 2)
Quarter: 2022Q3

REPORT INFORMATION
  Report Type: Spontaneous
  Country: US (occurrence: US)
  Receive Date: 20220624
  Receipt Date: 20220722
  Transmission Date: 20221027
  Serious: Yes (Other)
  Sender: FDA-Public Use
  Company Number: US-CELLTRION INC.-2022US009658

PATIENT

DRUGS (2)
  1. TRUXIMA [Suspect]
     Active Substance: RITUXIMAB-ABBS
     Indication: Sjogren^s syndrome
     Dosage: 1000 MG Q 14 DAYS
     Dates: start: 20220607
  2. TRUXIMA [Suspect]
     Active Substance: RITUXIMAB-ABBS
     Indication: Interstitial lung disease
     Dosage: 1000 MG Q180 DAYS
     Dates: start: 20220621

REACTIONS (4)
  - Sjogren^s syndrome [Unknown]
  - Interstitial lung disease [Unknown]
  - Off label use [Unknown]
  - Drug ineffective for unapproved indication [Unknown]

NARRATIVE: CASE EVENT DATE: 20220621
